FAERS Safety Report 5001880-1 (Version None)
Quarter: 2006Q2

REPORT INFORMATION
  Report Type: 
  Country: None (occurrence: None)
  Receive Date: 20060515
  Receipt Date: 20050912
  Transmission Date: 20061013
  Serious: Yes (Hospitalization)
  Sender: FDA-Public Use
  Company Number: CH-MERCK-0509CHE00030

PATIENT
  Age: 49 Year
  Sex: Female
  Weight: 72 kg

DRUGS (5)
  1. VIOXX [Suspect]
     Route: 048
     Dates: start: 20000101, end: 20000501
  2. SIBUTRAMINE HYDROCHLORIDE [Concomitant]
     Route: 048
  3. ORLISTAT [Concomitant]
     Route: 048
  4. GINSENG (UNSPECIFIED) [Concomitant]
     Route: 048
  5. HYDROCHLOROTHIAZIDE AND LOSARTAN POTASSIUM [Concomitant]
     Indication: HYPERTENSION
     Route: 048

REACTIONS (3)
  - CORONARY ARTERY DISEASE [None]
  - MYOCARDIAL INFARCTION [None]
  - SHOULDER OPERATION [None]
